FAERS Safety Report 6269814-X (Version None)
Quarter: 2009Q3

REPORT INFORMATION
  Report Type: 
  Country: None (occurrence: None)
  Receive Date: 20090716
  Receipt Date: 20090709
  Transmission Date: 20100115
  Serious: Yes (Hospitalization)
  Sender: FDA-Public Use
  Company Number: FR-WYE-G04019009

PATIENT
  Sex: Male

DRUGS (6)
  1. EFFEXOR [Suspect]
     Dosage: OVERDOSE AMOUNT: UNKNOWN
     Route: 048
     Dates: start: 20090606, end: 20090606
  2. EFFEXOR [Suspect]
     Dosage: OVERDOSE AMOUNT: UNKNOWN
     Dates: start: 20090610, end: 20090610
  3. SERESTA [Suspect]
     Dosage: 50 MG STRENGTH; OVERDOSE AMOUNT: UNKNOWN
     Route: 048
     Dates: start: 20090606, end: 20090606
  4. SERESTA [Suspect]
     Dosage: 50 MG STRENGTH; OVERDOSE AMOUNT: UNKNOWN
     Route: 048
     Dates: start: 20090610, end: 20090610
  5. ATARAX [Suspect]
     Dosage: OVERDOSE AMOUNT: UNKNOWN
     Route: 048
     Dates: start: 20090606, end: 20090606
  6. ATARAX [Suspect]
     Dosage: OVERDOSE AMOUNT: UNKNOWN
     Route: 048
     Dates: start: 20090610, end: 20090610

REACTIONS (3)
  - DEAFNESS NEUROSENSORY [None]
  - INTENTIONAL OVERDOSE [None]
  - SUICIDE ATTEMPT [None]
